FAERS Safety Report 9469586 (Version 1)
Quarter: 2013Q3

REPORT INFORMATION
  Report Type: Spontaneous
  Country: US (occurrence: US)
  Receive Date: 20130822
  Receipt Date: 20130822
  Transmission Date: 20140515
  Serious: No
  Sender: FDA-Public Use
  Company Number: US-009507513-1308USA001586

PATIENT
  Age: 52 Year
  Sex: Female

DRUGS (2)
  1. PEGINTRON [Suspect]
     Indication: CHRONIC HEPATITIS C
     Dosage: UNK, QW
     Route: 058
     Dates: start: 201303, end: 20130614
  2. REBETOL [Suspect]
     Dosage: UNK
     Route: 048
     Dates: end: 20130614

REACTIONS (3)
  - Abnormal behaviour [Unknown]
  - Depression [Unknown]
  - Aggression [Unknown]
